FAERS Safety Report 5695867-3 (Version None)
Quarter: 2008Q2

REPORT INFORMATION
  Report Type: 
  Country: None (occurrence: None)
  Receive Date: 20080404
  Receipt Date: 20080404
  Transmission Date: 20081010
  Serious: Yes (Life-Threatening, Hospitalization)
  Sender: FDA-Public Use
  Company Number: None

PATIENT
  Sex: Female
  Weight: 53.5244 kg

DRUGS (1)
  1. SINGULAIR [Suspect]
     Indication: ASTHMA EXERCISE INDUCED
     Dosage: TWO PILLS A DAY PO
     Route: 048
     Dates: start: 20060901, end: 20061029

REACTIONS (4)
  - DEPRESSION [None]
  - OVERDOSE [None]
  - STRESS [None]
  - SUICIDE ATTEMPT [None]
